FAERS Safety Report 9116975 (Version 2)
Quarter: 2013Q1

REPORT INFORMATION
  Report Type: Report from Study
  Country: JP (occurrence: JP)
  Receive Date: 20130225
  Receipt Date: 20130319
  Transmission Date: 20140127
  Serious: Yes (Death)
  Sender: FDA-Public Use
  Company Number: JP-JNJFOC-20130208928

PATIENT
  Age: 66 Year
  Sex: Male
  Weight: 51 kg

DRUGS (18)
  1. ONEDURO [Suspect]
     Indication: CANCER PAIN
     Route: 062
     Dates: start: 20121015
  2. ONEDURO [Suspect]
     Indication: CANCER PAIN
     Dosage: HALF SIDE PATCH APPLICATION (6.25 UG/HR)
     Route: 062
     Dates: start: 20120926, end: 20121014
  3. CRAVIT [Concomitant]
     Indication: PNEUMONIA ASPIRATION
     Route: 048
     Dates: start: 20121012, end: 20121018
  4. CRAVIT [Concomitant]
     Indication: PNEUMONIA ASPIRATION
     Route: 048
     Dates: start: 20121010, end: 20121011
  5. OXINORM [Concomitant]
     Indication: CANCER PAIN
     Route: 048
     Dates: start: 20121008, end: 20121008
  6. OXINORM [Concomitant]
     Indication: CANCER PAIN
     Route: 048
     Dates: start: 20121002, end: 20121002
  7. TAKEPRON [Concomitant]
     Indication: GASTRITIS
     Route: 048
     Dates: start: 20120924, end: 20120930
  8. TAKEPRON [Concomitant]
     Indication: GASTRITIS
     Route: 048
     Dates: start: 20121012, end: 20121018
  9. DECADRON [Concomitant]
     Indication: PNEUMONIA ASPIRATION
     Route: 048
     Dates: start: 20120925, end: 20121001
  10. SENNOSIDE [Concomitant]
     Indication: PROPHYLAXIS
     Route: 048
     Dates: start: 20120924, end: 20120930
  11. ZOSYN [Concomitant]
     Indication: PNEUMONIA ASPIRATION
     Route: 042
     Dates: start: 20120926, end: 20121003
  12. LOXONIN [Concomitant]
     Indication: CANCER PAIN
     Route: 061
     Dates: start: 20121003, end: 20121023
  13. DEPAKENE [Concomitant]
     Indication: PROPHYLAXIS
     Route: 048
     Dates: start: 20120925, end: 20121001
  14. AZUNOL [Concomitant]
     Indication: CANCER PAIN
     Route: 049
     Dates: start: 20121005, end: 20121023
  15. MOHRUS [Concomitant]
     Indication: CANCER PAIN
     Route: 062
     Dates: start: 20121005, end: 20121023
  16. RINDERON [Concomitant]
     Indication: PNEUMONIA ASPIRATION
     Route: 065
     Dates: start: 20120927, end: 20121015
  17. ATARAX-P [Concomitant]
     Indication: PNEUMONIA ASPIRATION
     Route: 065
     Dates: start: 20121011, end: 20121011
  18. ATARAX-P [Concomitant]
     Indication: PNEUMONIA ASPIRATION
     Route: 048
     Dates: start: 20121013, end: 20121014

REACTIONS (2)
  - Oesophageal carcinoma [Fatal]
  - Wrong technique in drug usage process [Unknown]
